FAERS Safety Report 5527379-1 (Version None)
Quarter: 2007Q4

REPORT INFORMATION
  Report Type: 
  Country: None (occurrence: None)
  Receive Date: 20071123
  Receipt Date: 20071119
  Transmission Date: 20080405
  Serious: Yes (Hospitalization)
  Sender: FDA-Public Use
  Company Number: 163-20785-07090398

PATIENT
  Age: 60 Year
  Sex: Female

DRUGS (1)
  1. THALOMID [Suspect]
     Indication: MULTIPLE MYELOMA
     Dosage: 200 MG, 2 IN 1 D, ORAL
     Route: 048
     Dates: start: 20070112, end: 20070301

REACTIONS (5)
  - ANXIETY [None]
  - BACK PAIN [None]
  - BLOOD POTASSIUM DECREASED [None]
  - FALL [None]
  - INSOMNIA [None]
